FAERS Safety Report 16695880 (Version 1)
Quarter: 2019Q3

REPORT INFORMATION
  Report Type: Spontaneous
  Country: ES (occurrence: ES)
  Receive Date: 20190813
  Receipt Date: 20190813
  Transmission Date: 20191004
  Serious: Yes (Hospitalization)
  Sender: FDA-Public Use
  Company Number: ES-TEVA-2019-ES-1091907

PATIENT
  Age: 38 Year
  Sex: Female
  Weight: 64 kg

DRUGS (7)
  1. DOCETAXEL ACCORD 160MG/8ML [Suspect]
     Active Substance: DOCETAXEL
     Indication: BREAST CANCER
     Dosage: FIRST CYCLE OF CHEMOTHERAPY NEOADYUVANTE OF CA DE MAMA
     Route: 042
     Dates: start: 20190610
  2. LORAZEPAM 1 MG [Concomitant]
     Active Substance: LORAZEPAM
     Indication: ANXIETY
     Dosage: 1 MILLIGRAM, 1 DAY
     Route: 048
     Dates: start: 20190611
  3. GENOXAL [Suspect]
     Active Substance: CYCLOPHOSPHAMIDE
     Indication: BREAST CANCER
     Dosage: FIRST CYCLE OF CHEMOTHERAPY NEOADYUVANTE OF CA DE MAMA
     Route: 042
     Dates: start: 20190610
  4. METOCLOPRAMIDA COMP 10 MG [Concomitant]
     Indication: PROPHYLAXIS OF NAUSEA AND VOMITING
     Dosage: 10 MILLIGRAM, 8 HOURS
     Route: 048
     Dates: start: 20190610
  5. EPIRUBICINA TEVA 200 MG/100 ML [Suspect]
     Active Substance: EPIRUBICIN
     Indication: BREAST CANCER
     Dosage: 200 MG/100 ML;FIRST CYCLE OF CHEMOTHERAPY NEOADYUVANTE OF CA DE MAMA
     Route: 042
     Dates: start: 20190610
  6. ZARZIO 300 MCG [Concomitant]
     Dosage: 1 INJECTION / DAY FOR 10 DAYS; 300 MICROGRAM, 1 DAY
     Route: 058
     Dates: start: 20190611, end: 20190616
  7. OMEPRAZOL 20 MG [Concomitant]
     Active Substance: OMEPRAZOLE
     Indication: PROPHYLAXIS AGAINST GASTROINTESTINAL ULCER
     Dosage: 20 MILLIGRAM, 24 HOURS
     Route: 048
     Dates: start: 20190610

REACTIONS (5)
  - Septic shock [Unknown]
  - Diarrhoea [Unknown]
  - Neutropenic colitis [Unknown]
  - Nausea [Unknown]
  - Neutropenia [Unknown]

NARRATIVE: CASE EVENT DATE: 20190619
